FAERS Safety Report 5862555-X (Version None)
Quarter: 2008Q3

REPORT INFORMATION
  Report Type: 
  Country: None (occurrence: None)
  Receive Date: 20080828
  Receipt Date: 20080819
  Transmission Date: 20090109
  Serious: Yes (Other)
  Sender: FDA-Public Use
  Company Number: US-ABBOTT-08P-163-0471236-00

PATIENT
  Age: 31 Year
  Sex: Female

DRUGS (5)
  1. NORVIR [Suspect]
     Indication: ANTIRETROVIRAL THERAPY
     Route: 048
     Dates: start: 20071113
  2. NORVIR [Suspect]
  3. ATAZANAVIR SULFATE [Concomitant]
     Indication: ANTIRETROVIRAL THERAPY
     Route: 048
     Dates: start: 20060630
  4. ATAZANAVIR SULFATE [Concomitant]
     Route: 048
     Dates: start: 20071113
  5. EMTRICITABINE [Concomitant]
     Indication: ANTIRETROVIRAL THERAPY
     Route: 048
     Dates: start: 20060630

REACTIONS (1)
  - ABORTION SPONTANEOUS [None]
